FAERS Safety Report 9019533 (Version 1)
Quarter: 2013Q1

REPORT INFORMATION
  Report Type: Report from Study
  Country: DE (occurrence: DE)
  Receive Date: 20130118
  Receipt Date: 20130118
  Transmission Date: 20140127
  Serious: Yes (Hospitalization)
  Sender: FDA-Public Use
  Company Number: DE-B.I. PHARMACEUTICALS,INC./RIDGEFIELD-2013-DE-00100DE

PATIENT
  Age: 76 None
  Sex: Male
  Weight: 95 kg

DRUGS (6)
  1. MICARDIS HCT [Suspect]
     Dosage: 2 ANZ
     Route: 048
     Dates: start: 20130113
  2. BISOPROLOL [Suspect]
     Dosage: 2 ANZ
     Route: 048
     Dates: start: 20130113
  3. SIMVASTATIN [Suspect]
     Dosage: 2 ANZ
     Route: 048
     Dates: start: 20130113
  4. ASPIRIN [Suspect]
     Dosage: 2 ANZ
     Route: 048
     Dates: start: 20130113
  5. TAMSULOSIN [Suspect]
     Dosage: 2 ANZ
     Route: 048
     Dates: start: 20130113
  6. FINASTERIDE [Suspect]
     Dosage: 2 ANZ
     Route: 048
     Dates: start: 20130113

REACTIONS (3)
  - Medication error [Unknown]
  - Inappropriate schedule of drug administration [None]
  - Incorrect dose administered [None]
